FAERS Safety Report 7559284-3 (Version None)
Quarter: 2011Q2

REPORT INFORMATION
  Report Type: 
  Country: None (occurrence: None)
  Receive Date: 20110617
  Receipt Date: 20110617
  Transmission Date: 20111010
  Serious: No
  Sender: FDA-Public Use
  Company Number: None

PATIENT
  Age: 58 Year
  Sex: Female

DRUGS (1)
  1. ZOCOR [Suspect]
     Dates: start: 20090804, end: 20091016

REACTIONS (5)
  - FATIGUE [None]
  - MYALGIA [None]
  - ALANINE AMINOTRANSFERASE DECREASED [None]
  - LIVER INJURY [None]
  - ASPARTATE AMINOTRANSFERASE INCREASED [None]
